FAERS Safety Report 11806149 (Version 1)
Quarter: 2015Q4

REPORT INFORMATION
  Report Type: Spontaneous
  Country: DE (occurrence: DE)
  Receive Date: 20151207
  Receipt Date: 20151207
  Transmission Date: 20160305
  Serious: Yes (Congenital Anomaly, Other)
  Sender: FDA-Public Use
  Company Number: DE-ACTAVIS-2015-25955

PATIENT
  Sex: Male
  Weight: 4 kg

DRUGS (6)
  1. TRAUMEEL                           /06048201/ [Concomitant]
     Indication: PAIN
     Dosage: UNK, UNKNOWN
     Route: 064
  2. VALDOXAN [Concomitant]
     Active Substance: AGOMELATINE
     Indication: DEPRESSION
     Dosage: 50 MG, DAILY
     Route: 064
     Dates: start: 20140511, end: 20140620
  3. FOLIC ACID. [Concomitant]
     Active Substance: FOLIC ACID
     Indication: PROPHYLAXIS OF NEURAL TUBE DEFECT
     Dosage: 1 DF, DAILY
     Route: 064
     Dates: start: 20140612, end: 20150220
  4. NOVAMINSULFON [Concomitant]
     Active Substance: METAMIZOLE
     Indication: FIBROMYALGIA
     Dosage: UNK, UNKNOWN
     Route: 064
     Dates: start: 20140511, end: 20140617
  5. BISOPROLOL (UNKNOWN) [Suspect]
     Active Substance: BISOPROLOL
     Indication: HYPERTENSION
     Dosage: 5 MG, BID
     Route: 064
     Dates: start: 20140511, end: 20150220
  6. CETIRIZINE [Suspect]
     Active Substance: CETIRIZINE HYDROCHLORIDE
     Indication: HYPERSENSITIVITY
     Dosage: 10 MG, DAILY
     Route: 064

REACTIONS (5)
  - Reflux nephropathy [Not Recovered/Not Resolved]
  - Hydroureter [Not Recovered/Not Resolved]
  - Congenital hydronephrosis [Not Recovered/Not Resolved]
  - Foetal exposure during pregnancy [Not Recovered/Not Resolved]
  - Large for dates baby [Unknown]

NARRATIVE: CASE EVENT DATE: 20150220
